FAERS Safety Report 8509345-7 (Version None)
Quarter: 2012Q3

REPORT INFORMATION
  Report Type: 
  Country: None (occurrence: None)
  Receive Date: 20120713
  Receipt Date: 20120707
  Transmission Date: 20120928
  Serious: Yes (Other)
  Sender: FDA-Public Use
  Company Number: EG-ROCHE-1086556

PATIENT
  Age: 54 Year
  Sex: Male

DRUGS (1)
  1. LUCENTIS [Suspect]
     Indication: CYSTOID MACULAR OEDEMA
     Route: 050
     Dates: start: 20120319

REACTIONS (1)
  - RETINAL DISORDER [None]
